FAERS Safety Report 9218028 (Version 3)
Quarter: 2013Q3

REPORT INFORMATION
  Report Type: Spontaneous
  Country: SE (occurrence: SE)
  Receive Date: 20130408
  Receipt Date: 20130722
  Transmission Date: 20140515
  Serious: Yes (Life-Threatening)
  Sender: FDA-Public Use
  Company Number: SE-EISAI INC-E2090-02586-SPO-SE

PATIENT
  Age: 2 Year
  Sex: Female

DRUGS (7)
  1. ZONEGRAN [Suspect]
     Indication: EPILEPSY
     Dosage: 1.5 MG/KG/D
     Route: 065
     Dates: start: 20130315, end: 20130329
  2. ERGENYL ORAL DROPS SOLUTION [Concomitant]
     Indication: PRODUCT USED FOR UNKNOWN INDICATION
     Dosage: 200 MG/ML
     Route: 048
     Dates: start: 201111
  3. KEPPRA ORAL SOLUTION [Concomitant]
     Indication: PRODUCT USED FOR UNKNOWN INDICATION
     Dosage: 100 MG/ML
     Route: 048
     Dates: start: 201202, end: 20130402
  4. SABRILEX GRANULES FOR ORAL SOLUTION [Concomitant]
     Indication: PRODUCT USED FOR UNKNOWN INDICATION
     Dosage: 500 MG DAILY
     Route: 048
     Dates: start: 201203
  5. DIAZEPAM [Concomitant]
     Indication: PRODUCT USED FOR UNKNOWN INDICATION
     Dosage: 5 MG PRN
     Route: 065
  6. MELATONIN CAPSULES [Concomitant]
     Indication: PRODUCT USED FOR UNKNOWN INDICATION
     Dosage: 3 MG DAILY
     Route: 048
  7. STESOLID RECTAL SOLUTION [Concomitant]
     Indication: PRODUCT USED FOR UNKNOWN INDICATION
     Dosage: 5 MG DAILLY
     Route: 054

REACTIONS (1)
  - Stevens-Johnson syndrome [Not Recovered/Not Resolved]
